FAERS Safety Report 12190041 (Version 2)
Quarter: 2016Q2

REPORT INFORMATION
  Report Type: Spontaneous
  Country: DE (occurrence: DE)
  Receive Date: 20160318
  Receipt Date: 20160503
  Transmission Date: 20160815
  Serious: No
  Sender: FDA-Public Use
  Company Number: DE-ROCHE-1727496

PATIENT
  Age: 64 Year
  Sex: Male
  Weight: 110 kg

DRUGS (1)
  1. XOLAIR [Suspect]
     Active Substance: OMALIZUMAB
     Indication: CHRONIC SPONTANEOUS URTICARIA
     Route: 058
     Dates: start: 20160205, end: 20160205

REACTIONS (6)
  - General physical health deterioration [Recovered/Resolved]
  - Product use issue [Unknown]
  - Urticaria [Not Recovered/Not Resolved]
  - Flushing [Recovered/Resolved]
  - Erythema [Recovered/Resolved]
  - Skin hypertrophy [Recovered/Resolved]

NARRATIVE: CASE EVENT DATE: 20160216
